FAERS Safety Report 6508206-2 (Version None)
Quarter: 2009Q4

REPORT INFORMATION
  Report Type: 
  Country: None (occurrence: None)
  Receive Date: 20091221
  Receipt Date: 20081208
  Transmission Date: 20100525
  Serious: No
  Sender: FDA-Public Use
  Company Number: US-ASTRAZENECA-2008UW27242

PATIENT
  Age: 54 Year
  Sex: Female
  Weight: 87.1 kg

DRUGS (4)
  1. CRESTOR [Suspect]
     Indication: HYPERCHOLESTEROLAEMIA
     Dosage: 10MG
     Route: 048
  2. CYCLOBENZAPRINE [Concomitant]
  3. PREMARIN [Concomitant]
  4. VICODIN [Concomitant]

REACTIONS (4)
  - ARTHRITIS [None]
  - MUSCLE SPASMS [None]
  - MUSCLE TIGHTNESS [None]
  - PARAESTHESIA [None]
